FAERS Safety Report 10220389 (Version 2)
Quarter: 2015Q1

REPORT INFORMATION
  Report Type: Spontaneous
  Country: US (occurrence: US)
  Receive Date: 20140606
  Receipt Date: 20150309
  Transmission Date: 20150720
  Serious: No
  Sender: FDA-Public Use
  Company Number: US-BIOGENIDEC-2014BI051933

PATIENT
  Sex: Female

DRUGS (2)
  1. AVONEX [Suspect]
     Active Substance: INTERFERON BETA-1A
     Indication: MULTIPLE SCLEROSIS
     Route: 030
     Dates: start: 20040924
  2. AVONEX [Suspect]
     Active Substance: INTERFERON BETA-1A
     Indication: MULTIPLE SCLEROSIS
     Route: 030
     Dates: start: 2014

REACTIONS (6)
  - Fear of injection [Not Recovered/Not Resolved]
  - Pain in extremity [Not Recovered/Not Resolved]
  - Injection site atrophy [Not Recovered/Not Resolved]
  - Pain [Not Recovered/Not Resolved]
  - Drug administered at inappropriate site [Recovered/Resolved]
  - Impaired healing [Unknown]

NARRATIVE: CASE EVENT DATE: 2014
